FAERS Safety Report 7012896-8 (Version None)
Quarter: 2010Q3

REPORT INFORMATION
  Report Type: 
  Country: None (occurrence: None)
  Receive Date: 20100924
  Receipt Date: 20100909
  Transmission Date: 20110219
  Serious: Yes (Other)
  Sender: FDA-Public Use
  Company Number: US-PURDUE-USA-2010-0045934

PATIENT
  Sex: Female

DRUGS (3)
  1. OXYCONTIN [Suspect]
     Indication: SURGERY
     Dosage: 80 MG, UNK
     Route: 048
     Dates: start: 20100819
  2. OXYCONTIN [Suspect]
     Indication: CEREBROVASCULAR ACCIDENT
  3. NEXIUM                             /01479303/ [Concomitant]

REACTIONS (8)
  - ABDOMINAL PAIN UPPER [None]
  - DYSPNOEA [None]
  - FEELING JITTERY [None]
  - FOREIGN BODY [None]
  - MALAISE [None]
  - NAUSEA [None]
  - PANIC ATTACK [None]
  - VOMITING [None]
